FAERS Safety Report 9802324 (Version 1)
Quarter: 2014Q1

REPORT INFORMATION
  Report Type: Spontaneous
  Country: US (occurrence: US)
  Receive Date: 20140107
  Receipt Date: 20140107
  Transmission Date: 20141002
  Serious: Yes (Disabling, Other)
  Sender: FDA-Public Use
  Company Number: PHHY2014US001152

PATIENT
  Age: 18 Year
  Sex: Female

DRUGS (10)
  1. TIZANIDINE [Suspect]
  2. FLUVOXAMINE MALEATE [Interacting]
  3. MIDODRINE HCL [Concomitant]
  4. FLUDROCORTISONE [Concomitant]
  5. DESVENLAFAXINE [Concomitant]
  6. CLONAZEPAM [Concomitant]
  7. TOPIRAMATE [Concomitant]
  8. DROSPIRENONE W/ETHINYLESTRADIOL [Concomitant]
  9. ZOLPIDEM [Concomitant]
  10. OXYCODONE HCL [Concomitant]

REACTIONS (6)
  - Dysstasia [Recovered/Resolved]
  - Syncope [Recovered/Resolved]
  - Hypotension [Recovered/Resolved]
  - Orthostatic hypotension [Recovered/Resolved]
  - Convulsion [Recovered/Resolved]
  - Drug interaction [Unknown]
